FAERS Safety Report 11174002 (Version 1)
Quarter: 2015Q2

REPORT INFORMATION
  Report Type: Spontaneous
  Country: IN (occurrence: None)
  Receive Date: 20150605
  Receipt Date: 20150605
  Transmission Date: 20150821
  Serious: Yes (Life-Threatening)
  Sender: FDA-Public Use
  Company Number: COR_00303_2015

PATIENT

DRUGS (4)
  1. 13-CIS-RETINOIC ACID (13-CIS-RETINOIC ACID) [Suspect]
     Active Substance: ISOTRETINOIN
     Indication: BRAIN NEOPLASM
     Dosage: 12 WEEKLY CYCLES
  2. ETOPOSIDE (ETOPOSIDE) [Suspect]
     Active Substance: ETOPOSIDE
     Indication: BRAIN NEOPLASM
     Dosage: 12 WEEKLY CYCLE
  3. SODIUM VALPROATE (SODIUM VALPROATE) [Suspect]
     Active Substance: VALPROATE SODIUM
     Indication: BRAIN NEOPLASM
     Dosage: 12 WEEKLY
  4. TEMOZOLOMIDE (TEMOZLOMIDE) [Suspect]
     Active Substance: TEMOZOLOMIDE
     Indication: BRAIN NEOPLASM
     Dosage: 12 WEEKLY CYCLES

REACTIONS (1)
  - Cytopenia [None]
